FAERS Safety Report 9302155 (Version 2)
Quarter: 2013Q4

REPORT INFORMATION
  Report Type: Spontaneous
  Country: US (occurrence: US)
  Receive Date: 20130522
  Receipt Date: 20131108
  Transmission Date: 20140711
  Serious: Yes (Hospitalization)
  Sender: FDA-Public Use
  Company Number: US-B.I. PHARMACEUTICALS,INC./RIDGEFIELD-2013-BI-14230BP

PATIENT
  Sex: Female
  Weight: 49.9 kg

DRUGS (9)
  1. PRADAXA [Suspect]
     Indication: ANTICOAGULANT THERAPY
     Dosage: 300 MG
     Route: 048
     Dates: start: 20111128, end: 20120114
  2. CARVEDILOL [Concomitant]
     Dosage: 50 MG
     Route: 048
  3. DIGOXIN [Concomitant]
     Dosage: 125 MCG
     Route: 048
  4. LISINOPRIL [Concomitant]
     Dosage: 5 MG
     Route: 048
  5. CLOPIDOGREL [Concomitant]
     Dosage: 75 MG
  6. ASPIRIN [Concomitant]
     Dosage: 81 MG
     Route: 048
  7. GABAPENTIN [Concomitant]
     Dosage: 200 MG
     Route: 048
  8. SIMVASTATIN [Concomitant]
     Dosage: 40 MG
  9. HYDROCODONE/ACETAMINOPHEM [Concomitant]
     Route: 048

REACTIONS (3)
  - Subdural haematoma [Unknown]
  - Haemorrhagic stroke [Unknown]
  - Cerebral haemorrhage [Unknown]
